FAERS Safety Report 5662278-6 (Version None)
Quarter: 2008Q1

REPORT INFORMATION
  Report Type: 
  Country: None (occurrence: None)
  Receive Date: 20080312
  Receipt Date: 20080310
  Transmission Date: 20080703
  Serious: Yes (Hospitalization, Other)
  Sender: FDA-Public Use
  Company Number: DE-MERCK-0802DEU00112

PATIENT
  Age: 57 Year
  Sex: Male
  Weight: 100 kg

DRUGS (2)
  1. VYTORIN [Suspect]
     Indication: TYPE IIA HYPERLIPIDAEMIA
     Route: 048
     Dates: start: 20070413, end: 20080211
  2. ASPIRIN [Concomitant]
     Route: 048
     Dates: start: 20030101, end: 20080101

REACTIONS (9)
  - ADVERSE EVENT [None]
  - COLON ADENOMA [None]
  - DIARRHOEA HAEMORRHAGIC [None]
  - HAEMATURIA [None]
  - INFLUENZA LIKE ILLNESS [None]
  - INTESTINAL POLYP [None]
  - PNEUMONIA [None]
  - RENAL FAILURE ACUTE [None]
  - RHABDOMYOLYSIS [None]
